FAERS Safety Report 8542902-0 (Version None)
Quarter: 2012Q3

REPORT INFORMATION
  Report Type: 
  Country: None (occurrence: None)
  Receive Date: 20120716
  Receipt Date: 20120704
  Transmission Date: 20120928
  Serious: Yes (Other)
  Sender: FDA-Public Use
  Company Number: ADR-2012-01275

PATIENT
  Age: 22 Year
  Sex: Male

DRUGS (1)
  1. LIORESAL [Suspect]
     Dosage: 2335.0 MCG/DAY

REACTIONS (5)
  - DRUG WITHDRAWAL SYNDROME [None]
  - HYPERTONIA [None]
  - PYREXIA [None]
  - MUSCLE SPASTICITY [None]
  - BLOOD CREATINE PHOSPHOKINASE INCREASED [None]
